FAERS Safety Report 5113875-8 (Version None)
Quarter: 2006Q3

REPORT INFORMATION
  Report Type: 
  Country: None (occurrence: None)
  Receive Date: 20060925
  Receipt Date: 20060808
  Transmission Date: 20061208
  Serious: Yes (Disabling, Other)
  Sender: FDA-Public Use
  Company Number: PHHO2006EC13054

PATIENT
  Age: 80 Year
  Sex: Female

DRUGS (1)
  1. GLEEVEC [Suspect]
     Indication: CHRONIC MYELOID LEUKAEMIA
     Dosage: 300 MG, QD
     Route: 048
     Dates: start: 20050909

REACTIONS (4)
  - EYELID OEDEMA [None]
  - FACE OEDEMA [None]
  - LACRIMATION INCREASED [None]
  - PHOTOPHOBIA [None]
